FAERS Safety Report 11617259 (Version 1)
Quarter: 2015Q4

REPORT INFORMATION
  Report Type: Report from Study
  Country: US (occurrence: US)
  Receive Date: 20151009
  Receipt Date: 20151009
  Transmission Date: 20160304
  Serious: Yes (Other)
  Sender: FDA-Public Use
  Company Number: US-AMGEN-USASL2015103704

PATIENT
  Age: 44 Year
  Sex: Female

DRUGS (1)
  1. ENBREL [Suspect]
     Active Substance: ETANERCEPT
     Indication: ANKYLOSING SPONDYLITIS
     Dosage: 50 MG, QWK
     Route: 065
     Dates: start: 2015, end: 201509

REACTIONS (8)
  - Cough [Unknown]
  - Back pain [Unknown]
  - Rheumatoid factor positive [Unknown]
  - Pain in extremity [Unknown]
  - Rheumatoid arthritis [Unknown]
  - Psoriatic arthropathy [Unknown]
  - Neuropathy peripheral [Unknown]
  - Arthralgia [Unknown]

NARRATIVE: CASE EVENT DATE: 2015
